FAERS Safety Report 25265620 (Version 2)
Quarter: 2025Q2

REPORT INFORMATION
  Report Type: Spontaneous
  Country: US (occurrence: US)
  Receive Date: 20250503
  Receipt Date: 20250514
  Transmission Date: 20250717
  Serious: Yes (Death, Hospitalization)
  Sender: TEVA
  Company Number: US-TEVA-VS-3327303

PATIENT
  Age: 31 Year
  Sex: Female

DRUGS (5)
  1. ACYCLOVIR [Suspect]
     Active Substance: ACYCLOVIR
     Indication: Herpes simplex hepatitis
     Route: 065
  2. FOSCARNET [Suspect]
     Active Substance: FOSCARNET
     Indication: Herpes simplex hepatitis
     Route: 065
  3. ACETYLCYSTEINE [Suspect]
     Active Substance: ACETYLCYSTEINE
     Indication: Acute hepatic failure
     Route: 065
  4. LACTULOSE [Suspect]
     Active Substance: LACTULOSE
     Indication: Acute hepatic failure
     Route: 065
  5. RIFAXIMIN [Suspect]
     Active Substance: RIFAXIMIN
     Indication: Acute hepatic failure
     Route: 065

REACTIONS (1)
  - Drug ineffective [Fatal]
